FAERS Safety Report 4463068-2 (Version None)
Quarter: 2004Q3

REPORT INFORMATION
  Report Type: 
  Country: None (occurrence: None)
  Receive Date: 20040928
  Receipt Date: 20040914
  Transmission Date: 20050211
  Serious: Yes (Disabling)
  Sender: FDA-Public Use
  Company Number: MEDI-0002231

PATIENT
  Age: 40 Year
  Sex: Male

DRUGS (4)
  1. ETHYOL [Suspect]
     Indication: CHEMOTHERAPY
  2. ETHYOL [Suspect]
     Indication: RADIOTHERAPY
  3. RADIATION THERAPY [Concomitant]
  4. CHEMOTHERAPY [Concomitant]

REACTIONS (1)
  - NERVOUS SYSTEM DISORDER [None]
